FAERS Safety Report 8542720-3 (Version None)
Quarter: 2012Q3

REPORT INFORMATION
  Report Type: 
  Country: None (occurrence: None)
  Receive Date: 20120727
  Receipt Date: 20120719
  Transmission Date: 20120928
  Serious: Yes (Life-Threatening, Hospitalization, Other)
  Sender: FDA-Public Use
  Company Number: US-BIOGENIDEC-2012BI027027

PATIENT
  Age: 39 Year
  Sex: Female

DRUGS (1)
  1. TYSABRI [Suspect]
     Indication: MULTIPLE SCLEROSIS
     Route: 042
     Dates: start: 20080820

REACTIONS (9)
  - PSYCHIATRIC SYMPTOM [None]
  - DIZZINESS [None]
  - UPPER LIMB FRACTURE [None]
  - BIPOLAR I DISORDER [None]
  - INTENTIONAL OVERDOSE [None]
  - MULTIPLE SCLEROSIS RELAPSE [None]
  - SUICIDE ATTEMPT [None]
  - FALL [None]
  - SUICIDAL IDEATION [None]
